FAERS Safety Report 9512018 (Version 2)
Quarter: 2013Q3

REPORT INFORMATION
  Report Type: Spontaneous
  Country: GR (occurrence: GR)
  Receive Date: 20130910
  Receipt Date: 20130910
  Transmission Date: 20140515
  Serious: Yes (Hospitalization, Other)
  Sender: FDA-Public Use
  Company Number: GR-NOVOPROD-372662

PATIENT
  Age: 41 Year
  Sex: Female
  Weight: 75 kg

DRUGS (1)
  1. ACTRAPID [Suspect]
     Indication: GESTATIONAL DIABETES
     Dosage: UNK
     Route: 065

REACTIONS (3)
  - Premature labour [Unknown]
  - Hypoglycaemia [Unknown]
  - Exposure during pregnancy [Unknown]
